FAERS Safety Report 22249189 (Version 1)
Quarter: 2023Q2

REPORT INFORMATION
  Report Type: Spontaneous
  Country: US (occurrence: None)
  Receive Date: 20230424
  Receipt Date: 20230424
  Transmission Date: 20230721
  Serious: Yes (unspecified)
  Sender: FDA-Public Use
  Company Number: None

PATIENT
  Age: 51 Year
  Sex: Female
  Weight: 83.46 kg

DRUGS (1)
  1. LYMPHOSEEK [Suspect]
     Active Substance: TECHNETIUM TC-99M TILMANOCEPT
     Indication: Breast cancer
     Dosage: OTHER STRENGTH : 515 UCI;?OTHER QUANTITY : 515 UCI;?FREQUENCY : ONCE;?
     Route: 058

REACTIONS (2)
  - Heart rate increased [None]
  - Urticaria [None]

NARRATIVE: CASE EVENT DATE: 20230424
